FAERS Safety Report 8584136-X (Version None)
Quarter: 2012Q3

REPORT INFORMATION
  Report Type: 
  Country: None (occurrence: None)
  Receive Date: 20120810
  Receipt Date: 20120807
  Transmission Date: 20120928
  Serious: No
  Sender: FDA-Public Use
  Company Number: US-009507513-1208USA003297

PATIENT

DRUGS (2)
  1. IMPLANON [Suspect]
     Indication: CONTRACEPTION
     Dosage: UNK, EVERY 3 YEARS
     Route: 059
     Dates: start: 20120806
  2. VITAMINS (UNSPECIFIED) [Concomitant]

REACTIONS (3)
  - HEADACHE [None]
  - DIZZINESS [None]
  - NAUSEA [None]
